FAERS Safety Report 6337990-6 (Version None)
Quarter: 2009Q3

REPORT INFORMATION
  Report Type: 
  Country: None (occurrence: None)
  Receive Date: 20090902
  Receipt Date: 20090819
  Transmission Date: 20100115
  Serious: Yes (Hospitalization)
  Sender: FDA-Public Use
  Company Number: ES-ELI_LILLY_AND_COMPANY-ES200908006611

PATIENT
  Sex: Female

DRUGS (1)
  1. FORTEO [Suspect]
     Indication: ATTENTION DEFICIT/HYPERACTIVITY DISORDER
     Dosage: UNK, UNKNOWN
     Route: 065
     Dates: end: 20090101

REACTIONS (2)
  - HIP FRACTURE [None]
  - OFF LABEL USE [None]
